FAERS Safety Report 4681006-4 (Version None)
Quarter: 2005Q2

REPORT INFORMATION
  Report Type: 
  Country: None (occurrence: None)
  Receive Date: 20050603
  Receipt Date: 20050509
  Transmission Date: 20051028
  Serious: Yes (Hospitalization)
  Sender: FDA-Public Use
  Company Number: 200514127GDDC

PATIENT
  Age: 50 Year
  Sex: Male
  Weight: 80 kg

DRUGS (7)
  1. ENOXAPARIN SODIUM [Suspect]
     Indication: MYOCARDIAL INFARCTION
     Dosage: DOSE: ENOXAPRIN BOLUS NOT GIVEN
  2. STREPTASE [Suspect]
     Indication: MYOCARDIAL INFARCTION
     Route: 042
     Dates: start: 20050323, end: 20050323
  3. ASPIRIN [Suspect]
     Indication: MYOCARDIAL INFARCTION
     Route: 048
     Dates: start: 20050323
  4. CLOPIDOGREL [Concomitant]
     Indication: ACUTE CORONARY SYNDROME
     Route: 048
     Dates: start: 20050323
  5. METOPROLOL [Concomitant]
     Indication: ACUTE CORONARY SYNDROME
     Route: 048
     Dates: start: 20050328
  6. SIMVASTATIN [Concomitant]
     Indication: ACUTE CORONARY SYNDROME
     Route: 048
     Dates: start: 20050323
  7. NITRODERM [Concomitant]
     Indication: ACUTE CORONARY SYNDROME
     Route: 062
     Dates: start: 20050328

REACTIONS (16)
  - ANGIOPATHY [None]
  - CHONDROCALCINOSIS PYROPHOSPHATE [None]
  - CHONDROPATHY [None]
  - ERYTHEMA [None]
  - HYDROCELE [None]
  - LYMPHOCYTE COUNT INCREASED [None]
  - MEAN CELL HAEMOGLOBIN DECREASED [None]
  - MEAN CELL VOLUME INCREASED [None]
  - MONARTHRITIS [None]
  - NEUTROPHIL COUNT INCREASED [None]
  - PAIN [None]
  - POLYARTHRITIS [None]
  - RED CELL DISTRIBUTION WIDTH INCREASED [None]
  - SKIN WARM [None]
  - SYNOVIAL FLUID ANALYSIS ABNORMAL [None]
  - WHITE BLOOD CELL COUNT INCREASED [None]
